FAERS Safety Report 10104105 (Version 1)
Quarter: 2014Q2

REPORT INFORMATION
  Report Type: Spontaneous
  Country: DE (occurrence: DE)
  Receive Date: 20140424
  Receipt Date: 20140424
  Transmission Date: 20141212
  Serious: Yes (Other)
  Sender: FDA-Public Use
  Company Number: DE-TEVA-476113GER

PATIENT
  Age: 22 Year
  Sex: Male
  Weight: 75 kg

DRUGS (2)
  1. PROPOFOL 2% [Suspect]
     Indication: SEDATION
     Dosage: 8.16 GRAM DAILY;
     Route: 042
     Dates: start: 20140406
  2. PROPOFOL 2% [Suspect]
     Dosage: 8.16 GRAM DAILY;
     Route: 042
     Dates: start: 20140409

REACTIONS (3)
  - Propofol infusion syndrome [Recovered/Resolved]
  - Lactic acidosis [Recovered/Resolved]
  - Myoglobinaemia [Recovered/Resolved]
